FAERS Safety Report 9799029 (Version 2)
Quarter: 2015Q3

REPORT INFORMATION
  Report Type: Spontaneous
  Country: US (occurrence: US)
  Receive Date: 20140106
  Receipt Date: 20150806
  Transmission Date: 20151125
  Serious: No
  Sender: FDA-Public Use
  Company Number: US-GILEAD-2010-0032331

PATIENT
  Age: 49 Year
  Sex: Male
  Weight: 68.49 kg

DRUGS (24)
  1. TEMAZEPAM. [Concomitant]
     Active Substance: TEMAZEPAM
  2. VITAMIN B12 [Concomitant]
     Active Substance: CYANOCOBALAMIN
  3. MEPHYTON [Concomitant]
     Active Substance: PHYTONADIONE
  4. DRONABINOL. [Concomitant]
     Active Substance: DRONABINOL
  5. DIFLUCAN [Concomitant]
     Active Substance: FLUCONAZOLE
  6. ZITHROMAX [Concomitant]
     Active Substance: AZITHROMYCIN DIHYDRATE
  7. COMPAZINE [Concomitant]
     Active Substance: PROCHLORPERAZINE MALEATE
  8. SELZENTRY [Concomitant]
     Active Substance: MARAVIROC
  9. PANCREASE MT [Concomitant]
     Active Substance: PANCRELIPASE
  10. INTELENCE [Concomitant]
     Active Substance: ETRAVIRINE
  11. POTASSIUM CL [Concomitant]
     Active Substance: POTASSIUM CHLORIDE
  12. LETAIRIS [Suspect]
     Active Substance: AMBRISENTAN
     Indication: PULMONARY ARTERIAL HYPERTENSION
     Route: 048
     Dates: start: 20100813, end: 20101001
  13. ADCIRCA [Concomitant]
     Active Substance: TADALAFIL
  14. VITAMIN A [Concomitant]
     Active Substance: VITAMIN A
  15. CENTRUM [Concomitant]
     Active Substance: VITAMINS
  16. LASIX [Concomitant]
     Active Substance: FUROSEMIDE
  17. CLARITIN [Concomitant]
     Active Substance: LORATADINE
  18. NEXIUM [Concomitant]
     Active Substance: ESOMEPRAZOLE MAGNESIUM
  19. OXYCODONE [Concomitant]
     Active Substance: OXYCODONE
  20. PERCOCET [Concomitant]
     Active Substance: ACETAMINOPHEN\OXYCODONE HYDROCHLORIDE
  21. ATIVAN [Concomitant]
     Active Substance: LORAZEPAM
  22. RANITIDINE [Concomitant]
     Active Substance: RANITIDINE\RANITIDINE HYDROCHLORIDE
  23. OXYCONTIN [Concomitant]
     Active Substance: OXYCODONE HYDROCHLORIDE
  24. TRAZODONE [Concomitant]
     Active Substance: TRAZODONE HYDROCHLORIDE

REACTIONS (2)
  - Nausea [Recovered/Resolved]
  - Vomiting [Recovered/Resolved]
